FAERS Safety Report 11516420 (Version 1)
Quarter: 2015Q3

REPORT INFORMATION
  Report Type: Spontaneous
  Country: US (occurrence: US)
  Receive Date: 20150917
  Receipt Date: 20150917
  Transmission Date: 20151125
  Serious: No
  Sender: FDA-Public Use
  Company Number: US-PFIZER INC-2015302444

PATIENT
  Sex: Female

DRUGS (1)
  1. ADVIL MIGRAINE [Suspect]
     Active Substance: IBUPROFEN
     Dosage: 2 DF, 1X/DAY IN THE MORNING
     Dates: start: 20150908

REACTIONS (1)
  - Drug ineffective [Unknown]

NARRATIVE: CASE EVENT DATE: 20150908
